FAERS Safety Report 8859404 (Version 1)
Quarter: 2012Q4

REPORT INFORMATION
  Report Type: Report from Study
  Country: GB (occurrence: GB)
  Receive Date: 20121024
  Receipt Date: 20121024
  Transmission Date: 20130627
  Serious: Yes (Hospitalization)
  Sender: FDA-Public Use
  Company Number: GB-JNJFOC-20121010086

PATIENT
  Sex: Female
  Weight: 97 kg

DRUGS (10)
  1. USTEKINUMAB [Suspect]
     Indication: PSORIASIS
     Route: 058
     Dates: start: 20110419
  2. MORPHINE SULPHATE [Concomitant]
     Dates: start: 20100601
  3. OMEPRAZOLE [Concomitant]
     Dates: start: 20030606
  4. PARACETAMOL [Concomitant]
     Dates: start: 19910101
  5. SALBUTAMOL [Concomitant]
     Dates: start: 20080601
  6. TEMAZEPAM [Concomitant]
     Dates: start: 20100101
  7. VENLAFAXINE [Concomitant]
     Dates: start: 20090901
  8. ETORICOXIB [Concomitant]
     Dates: start: 20110913
  9. QUETIAPINE [Concomitant]
     Dates: start: 20110913
  10. MIRTAZAPINE [Concomitant]
     Dates: start: 20110913

REACTIONS (2)
  - Hernia [Recovered/Resolved]
  - Gallbladder disorder [Unknown]
